FAERS Safety Report 8502312-9 (Version None)
Quarter: 2012Q3

REPORT INFORMATION
  Report Type: 
  Country: None (occurrence: None)
  Receive Date: 20120711
  Receipt Date: 20120224
  Transmission Date: 20120928
  Serious: No
  Sender: FDA-Public Use
  Company Number: US-COVIDIEN/TYCO HEALTHCARE/MALLINCKRODT-T201200710

PATIENT
  Age: 1 Day
  Sex: Female

DRUGS (1)
  1. OXYCODONE HCL [Suspect]
     Dosage: UNK

REACTIONS (1)
  - FOETAL EXPOSURE DURING PREGNANCY [None]
